FAERS Safety Report 19096679 (Version 1)
Quarter: 2021Q2

REPORT INFORMATION
  Report Type: Report from Study
  Country: US (occurrence: US)
  Receive Date: 20210406
  Receipt Date: 20210406
  Transmission Date: 20210717
  Serious: Yes (Other)
  Sender: FDA-Public Use
  Company Number: US-MYLANLABS-2021M1019836

PATIENT
  Sex: Female

DRUGS (2)
  1. CLOBETASOL [Suspect]
     Active Substance: CLOBETASOL
     Indication: DERMATITIS ATOPIC
     Dosage: APPLY TO AFFECTED AREA AS NEEDED FOR TWO WEEKS IN A MONTH
     Route: 061
     Dates: start: 201903
  2. CLOBETASOL [Suspect]
     Active Substance: CLOBETASOL
     Dosage: UNK
     Dates: start: 202011, end: 20210222

REACTIONS (1)
  - Drug ineffective [Unknown]
